FAERS Safety Report 19176607 (Version 1)
Quarter: 2021Q2

REPORT INFORMATION
  Report Type: Spontaneous
  Country: FR (occurrence: FR)
  Receive Date: 20210424
  Receipt Date: 20210424
  Transmission Date: 20210717
  Serious: Yes (Other)
  Sender: FDA-Public Use
  Company Number: FR-MACLEODS PHARMACEUTICALS US LTD-MAC2021030903

PATIENT

DRUGS (3)
  1. TRAMADOL. [Suspect]
     Active Substance: TRAMADOL
     Indication: HEADACHE
     Dosage: 200 MILLIGRAM, 4 TO 6 TRAMADOL 200 MG SR
     Route: 065
     Dates: start: 2015
  2. TRAMADOL 50 MG [Suspect]
     Active Substance: TRAMADOL
     Indication: HEADACHE
     Dosage: 10 DOSAGE FORM, QD
     Route: 065
     Dates: start: 2015
  3. ACUPAN [Concomitant]
     Active Substance: NEFOPAM HYDROCHLORIDE
     Indication: HEADACHE
     Dosage: 3 DOSAGE FORM (3 AMPOULES)
     Route: 065
     Dates: start: 201502

REACTIONS (2)
  - Overdose [Recovered/Resolved]
  - Drug dependence [Recovering/Resolving]
